APPROVED DRUG PRODUCT: DESOXIMETASONE
Active Ingredient: DESOXIMETASONE
Strength: 0.25%
Dosage Form/Route: OINTMENT;TOPICAL
Application: A206740 | Product #001
Applicant: COSETTE PHARMACEUTICALS INC
Approved: Dec 23, 2016 | RLD: No | RS: No | Type: DISCN